FAERS Safety Report 12617204 (Version 2)
Quarter: 2023Q1

REPORT INFORMATION
  Report Type: Report from Study
  Country: US (occurrence: None)
  Receive Date: 20160803
  Receipt Date: 20230307
  Transmission Date: 20230417
  Serious: Yes (Hospitalization)
  Sender: FDA-Public Use
  Company Number: US-ROCHE-1569150

PATIENT
  Age: 66 Year
  Sex: Male
  Weight: 79.3 kg

DRUGS (26)
  1. ATEZOLIZUMAB [Suspect]
     Active Substance: ATEZOLIZUMAB
     Indication: Bladder transitional cell carcinoma metastatic
     Dosage: MOST RECENT DOSE OF MPDL3280A  WAS 1200 MG ADMINISTERED ON 23/APR/2015 PRIOR TO AE ONSET.
     Route: 041
     Dates: start: 20140924
  2. ASPIRIN [Concomitant]
     Active Substance: ASPIRIN
     Indication: Hypertension
     Route: 048
     Dates: end: 201411
  3. ASPIRIN [Concomitant]
     Active Substance: ASPIRIN
     Indication: Hypercholesterolaemia
  4. FLOMAX [Concomitant]
     Active Substance: TAMSULOSIN HYDROCHLORIDE
     Indication: Benign prostatic hyperplasia
     Route: 048
     Dates: start: 20141126
  5. AMLODIPINE [Concomitant]
     Active Substance: AMLODIPINE BESYLATE
     Indication: Hypertension
     Route: 048
     Dates: start: 20140908
  6. AMLODIPINE [Concomitant]
     Active Substance: AMLODIPINE BESYLATE
     Route: 048
     Dates: start: 20150424, end: 20150424
  7. AZITHROMYCIN [Concomitant]
     Active Substance: AZITHROMYCIN
     Route: 048
     Dates: start: 20150417, end: 2015
  8. ADVICOR [Concomitant]
     Active Substance: LOVASTATIN\NIACIN
     Indication: Blood cholesterol increased
     Route: 048
     Dates: end: 2014
  9. CALCITRIOL [Concomitant]
     Active Substance: CALCITRIOL
     Indication: Nutritional supplementation
     Dosage: 1 CAPSULE, 0.25 MCG
     Route: 048
     Dates: start: 20150422
  10. CALCITRIOL [Concomitant]
     Active Substance: CALCITRIOL
     Dosage: DOSE: 1 CAPSULE
     Route: 048
     Dates: start: 20150306
  11. ZYRTEC [Concomitant]
     Active Substance: CETIRIZINE HYDROCHLORIDE
     Indication: Hypersensitivity
     Route: 048
     Dates: start: 20150422, end: 20150603
  12. SODIUM CHLORIDE [Concomitant]
     Active Substance: SODIUM CHLORIDE
     Route: 042
     Dates: start: 20150423, end: 20150423
  13. SODIUM CHLORIDE [Concomitant]
     Active Substance: SODIUM CHLORIDE
     Route: 042
     Dates: start: 20150424, end: 20150424
  14. SODIUM CHLORIDE [Concomitant]
     Active Substance: SODIUM CHLORIDE
     Route: 042
     Dates: start: 20150701, end: 20150701
  15. OXYCODONE [Concomitant]
     Active Substance: OXYCODONE
     Indication: Pain
     Dosage: OXYCODONE (C-11)
     Route: 048
     Dates: start: 20150424, end: 20150424
  16. VALTREX [Concomitant]
     Active Substance: VALACYCLOVIR HYDROCHLORIDE
     Indication: Herpes zoster
     Route: 048
     Dates: start: 20150805, end: 20150826
  17. ATIVAN [Concomitant]
     Active Substance: LORAZEPAM
     Indication: Insomnia
     Route: 048
     Dates: start: 20150218, end: 20150401
  18. SYNTHROID [Concomitant]
     Active Substance: LEVOTHYROXINE SODIUM
     Indication: Hypothyroidism
     Dosage: DOSE: 1 TABLET
     Route: 048
     Dates: start: 20150826, end: 20150929
  19. SYNTHROID [Concomitant]
     Active Substance: LEVOTHYROXINE SODIUM
     Route: 048
     Dates: start: 20150930, end: 20151005
  20. SYNTHROID [Concomitant]
     Active Substance: LEVOTHYROXINE SODIUM
     Route: 048
     Dates: start: 20151006, end: 20151118
  21. FLONASE [Concomitant]
     Active Substance: FLUTICASONE PROPIONATE
     Indication: Ear discomfort
     Dosage: DOSE: 50 OTHER
     Route: 055
     Dates: start: 20150821
  22. FLONASE [Concomitant]
     Active Substance: FLUTICASONE PROPIONATE
     Indication: Hypersensitivity
     Dosage: DOSE: 50 OTHER
     Dates: start: 20150507, end: 20150805
  23. LEVOTHYROXINE [Concomitant]
     Active Substance: LEVOTHYROXINE
     Indication: Hypothyroidism
     Dates: start: 20151009
  24. LOTRIMIN CREAM [Concomitant]
     Indication: Paronychia
     Route: 061
     Dates: start: 20110130
  25. AUGMENTIN [Concomitant]
     Active Substance: AMOXICILLIN\CLAVULANATE POTASSIUM
     Dosage: 875 MG-125 -MG?DOSE: 1 TABLET
     Route: 048
     Dates: start: 20150701, end: 20150805
  26. CETIRIZINE HCL [Concomitant]
     Active Substance: CETIRIZINE HYDROCHLORIDE
     Indication: Hypersensitivity
     Route: 048
     Dates: start: 20150424, end: 20150603

REACTIONS (2)
  - Rhabdomyolysis [Recovered/Resolved]
  - Blood creatine phosphokinase increased [Recovered/Resolved]

NARRATIVE: CASE EVENT DATE: 20150423
